FAERS Safety Report 23447071 (Version 1)
Quarter: 2024Q1

REPORT INFORMATION
  Report Type: Spontaneous
  Country: GB (occurrence: GB)
  Receive Date: 20240126
  Receipt Date: 20240126
  Transmission Date: 20240410
  Serious: Yes (Death, Life-Threatening, Hospitalization, Other)
  Sender: FDA-Public Use
  Company Number: None

PATIENT
  Age: 8 Year
  Sex: Female
  Weight: 27 kg

DRUGS (2)
  1. DOTAREM [Suspect]
     Active Substance: GADOTERATE MEGLUMINE
     Indication: Cardiac imaging procedure
     Route: 051
     Dates: start: 20231115, end: 20231115
  2. NADOLOL [Concomitant]
     Active Substance: NADOLOL
     Indication: Cardiomyopathy

REACTIONS (3)
  - Anaphylactic reaction [Fatal]
  - Condition aggravated [Fatal]
  - Overdose [Fatal]

NARRATIVE: CASE EVENT DATE: 20231115
